FAERS Safety Report 8067051-X (Version None)
Quarter: 2012Q1

REPORT INFORMATION
  Report Type: 
  Country: None (occurrence: None)
  Receive Date: 20120124
  Receipt Date: 20120117
  Transmission Date: 20120608
  Serious: Yes (Hospitalization)
  Sender: FDA-Public Use
  Company Number: US-ACTELION-A-US2010-40140

PATIENT

DRUGS (6)
  1. TRACLEER [Suspect]
     Indication: PULMONARY ARTERIAL HYPERTENSION
     Dosage: UNK
     Route: 048
     Dates: start: 20070504, end: 20091019
  2. REVATIO [Concomitant]
  3. COUMADIN [Concomitant]
  4. TRACLEER [Suspect]
     Dosage: UNK
     Route: 055
  5. VENTAVIS [Suspect]
     Indication: PULMONARY ARTERIAL HYPERTENSION
     Dosage: 20
     Route: 055
     Dates: start: 20080815
  6. FENTANYL [Suspect]

REACTIONS (8)
  - CONDITION AGGRAVATED [None]
  - CELLULITIS [None]
  - HYPERSENSITIVITY [None]
  - SYNCOPE [None]
  - TOOTH INFECTION [None]
  - PULMONARY ARTERIAL HYPERTENSION [None]
  - COUGH [None]
  - DIZZINESS [None]
